FAERS Safety Report 21017495 (Version 1)
Quarter: 2022Q2

REPORT INFORMATION
  Report Type: Spontaneous
  Country: US (occurrence: None)
  Receive Date: 20220627
  Receipt Date: 20220627
  Transmission Date: 20220720
  Serious: Yes (Death, Life-Threatening, Hospitalization)
  Sender: FDA-Public Use
  Company Number: None

PATIENT
  Age: 69 Year
  Sex: Female
  Weight: 86.4 kg

DRUGS (4)
  1. ZELBORAF [Suspect]
     Active Substance: VEMURAFENIB
     Indication: Malignant melanoma stage III
     Dosage: FREQUENCY : TWICE A DAY;?
     Route: 048
     Dates: start: 20220608, end: 20220612
  2. COTELLIC [Suspect]
     Active Substance: COBIMETINIB
     Indication: Malignant melanoma stage III
     Dosage: FREQUENCY : DAILY;?
     Route: 048
     Dates: start: 20220608, end: 20220612
  3. ENOXAPARIN [Concomitant]
     Active Substance: ENOXAPARIN
     Dates: start: 20220506
  4. ONDANSETRON [Concomitant]
     Active Substance: ONDANSETRON
     Dates: start: 20220527

REACTIONS (13)
  - Mental status changes [None]
  - Rash maculo-papular [None]
  - Acute kidney injury [None]
  - Renal failure [None]
  - Rhabdomyolysis [None]
  - Encephalopathy [None]
  - Sepsis [None]
  - Troponin increased [None]
  - Respiratory distress [None]
  - Dialysis [None]
  - Circulatory collapse [None]
  - Acidosis [None]
  - Multiple organ dysfunction syndrome [None]

NARRATIVE: CASE EVENT DATE: 20220612
